FAERS Safety Report 25341255 (Version 6)
Quarter: 2025Q3

REPORT INFORMATION
  Report Type: Report from Study
  Country: EU (occurrence: EU)
  Receive Date: 20250521
  Receipt Date: 20250919
  Transmission Date: 20251020
  Serious: Yes (Other)
  Sender: AUROBINDO
  Company Number: EU-AUROBINDO-AUR-APL-2025-025190

PATIENT
  Age: 48 Year
  Sex: Female

DRUGS (36)
  1. TRAMADOL [Interacting]
     Active Substance: TRAMADOL
     Indication: Back pain
     Route: 048
  2. TRAMADOL [Interacting]
     Active Substance: TRAMADOL
     Indication: Sacral pain
     Dosage: 100 MILLIGRAM, 3 TIMES A DAY
     Route: 048
  3. METOPROLOL [Interacting]
     Active Substance: METOPROLOL
     Indication: Atrial fibrillation
     Route: 065
  4. METOPROLOL [Interacting]
     Active Substance: METOPROLOL
     Indication: Ischaemic stroke
     Dosage: 50 MILLIGRAM, TWO TIMES A DAY
     Route: 048
  5. METOPROLOL [Interacting]
     Active Substance: METOPROLOL
     Indication: Cardiac failure
  6. METOPROLOL [Interacting]
     Active Substance: METOPROLOL
     Indication: Sleep disorder
  7. ESCITALOPRAM [Suspect]
     Active Substance: ESCITALOPRAM OXALATE
     Indication: Mood swings
     Dosage: 20 MILLIGRAM, ONCE A DAY (20 MG, 1X PER DAY)
     Route: 048
     Dates: start: 2024
  8. APIXABAN [Suspect]
     Active Substance: APIXABAN
     Indication: Atrial fibrillation
     Route: 065
  9. RAMIPRIL [Suspect]
     Active Substance: RAMIPRIL
     Indication: Atrial fibrillation
     Route: 065
  10. RAMIPRIL [Suspect]
     Active Substance: RAMIPRIL
     Indication: Ischaemic stroke
  11. RAMIPRIL [Suspect]
     Active Substance: RAMIPRIL
     Indication: Cardiac failure
  12. RAMIPRIL [Suspect]
     Active Substance: RAMIPRIL
     Indication: Sleep disorder
  13. PANTOPRAZOLE [Suspect]
     Active Substance: PANTOPRAZOLE
     Indication: Ischaemic stroke
     Route: 065
  14. PANTOPRAZOLE [Suspect]
     Active Substance: PANTOPRAZOLE
     Indication: Cardiac failure
  15. PANTOPRAZOLE [Suspect]
     Active Substance: PANTOPRAZOLE
     Indication: Sleep disorder
  16. ROSUVASTATIN [Suspect]
     Active Substance: ROSUVASTATIN
     Indication: Ischaemic stroke
     Route: 065
  17. ROSUVASTATIN [Suspect]
     Active Substance: ROSUVASTATIN
     Indication: Cardiac failure
  18. ROSUVASTATIN [Suspect]
     Active Substance: ROSUVASTATIN
     Indication: Sleep disorder
  19. DAPAGLIFLOZIN [Suspect]
     Active Substance: DAPAGLIFLOZIN
     Indication: Ischaemic stroke
     Route: 065
  20. DAPAGLIFLOZIN [Suspect]
     Active Substance: DAPAGLIFLOZIN
     Indication: Cardiac failure
  21. DAPAGLIFLOZIN [Suspect]
     Active Substance: DAPAGLIFLOZIN
     Indication: Sleep disorder
  22. AMIODARONE [Interacting]
     Active Substance: AMIODARONE
     Indication: Atrial fibrillation
     Route: 048
  23. AMIODARONE [Interacting]
     Active Substance: AMIODARONE
     Dosage: 200 MILLIGRAM, ONCE A DAY
     Route: 065
  24. DIPHENHYDRAMINE [Interacting]
     Active Substance: DIPHENHYDRAMINE
     Indication: Product used for unknown indication
     Route: 065
  25. DIPHENHYDRAMINE [Interacting]
     Active Substance: DIPHENHYDRAMINE
     Indication: Atrial fibrillation
  26. ASPIRIN [Suspect]
     Active Substance: ASPIRIN
     Indication: Ischaemic stroke
     Route: 065
  27. ASPIRIN [Suspect]
     Active Substance: ASPIRIN
     Indication: Cardiac failure
  28. ASPIRIN [Suspect]
     Active Substance: ASPIRIN
     Indication: Sleep disorder
  29. TORSEMIDE [Suspect]
     Active Substance: TORSEMIDE
     Indication: Ischaemic stroke
     Route: 065
  30. TORSEMIDE [Suspect]
     Active Substance: TORSEMIDE
     Indication: Cardiac failure
  31. TORSEMIDE [Suspect]
     Active Substance: TORSEMIDE
     Indication: Sleep disorder
  32. BISOPROLOL [Concomitant]
     Active Substance: BISOPROLOL
     Indication: Product used for unknown indication
     Route: 065
  33. WARFARIN [Concomitant]
     Active Substance: WARFARIN
     Indication: Product used for unknown indication
     Route: 065
  34. GLICLAZIDE [Concomitant]
     Active Substance: GLICLAZIDE
     Indication: Product used for unknown indication
     Route: 065
  35. POTASSIUM [Concomitant]
     Active Substance: POTASSIUM
     Indication: Product used for unknown indication
     Route: 065
  36. ESTAZOLAM [Concomitant]
     Active Substance: ESTAZOLAM
     Indication: Insomnia
     Route: 065

REACTIONS (11)
  - Arrhythmia [Unknown]
  - Serotonin syndrome [Unknown]
  - Ventricular arrhythmia [Unknown]
  - Disease risk factor [Unknown]
  - Drug interaction [Unknown]
  - Drug-disease interaction [Unknown]
  - Nausea [Unknown]
  - Vomiting [Unknown]
  - Dehydration [Unknown]
  - Electrolyte imbalance [Unknown]
  - No adverse event [Unknown]

NARRATIVE: CASE EVENT DATE: 20240101
